FAERS Safety Report 7632891-5 (Version None)
Quarter: 2011Q3

REPORT INFORMATION
  Report Type: 
  Country: None (occurrence: None)
  Receive Date: 20110725
  Receipt Date: 20110713
  Transmission Date: 20111222
  Serious: Yes (Other)
  Sender: FDA-Public Use
  Company Number: PHEH2010US03402

PATIENT
  Sex: Female

DRUGS (3)
  1. ZOMETA [Suspect]
     Indication: MULTIPLE MYELOMA
     Dosage: 4 MG, MONTHLY
     Route: 042
     Dates: start: 20061129
  2. PERIDEX [Concomitant]
  3. FOSAMAX [Suspect]

REACTIONS (8)
  - OSTEOPOROSIS [None]
  - TOOTH LOSS [None]
  - INJURY [None]
  - ANXIETY [None]
  - OSTEONECROSIS OF JAW [None]
  - ANHEDONIA [None]
  - PAIN [None]
  - EXPOSED BONE IN JAW [None]
